FAERS Safety Report 5933741-5 (Version None)
Quarter: 2008Q4

REPORT INFORMATION
  Report Type: 
  Country: None (occurrence: None)
  Receive Date: 20081029
  Receipt Date: 20081017
  Transmission Date: 20090506
  Serious: Yes (Hospitalization)
  Sender: FDA-Public Use
  Company Number: US-ROCHE-592084

PATIENT
  Age: 40 Year
  Sex: Female

DRUGS (1)
  1. CELLCEPT [Suspect]
     Route: 065

REACTIONS (4)
  - AGGRESSION [None]
  - COMA [None]
  - CONFUSIONAL STATE [None]
  - WHITE BLOOD CELL COUNT INCREASED [None]
